FAERS Safety Report 20383867 (Version 1)
Quarter: 2022Q1

REPORT INFORMATION
  Report Type: Spontaneous
  Country: US (occurrence: US)
  Receive Date: 20220127
  Receipt Date: 20220127
  Transmission Date: 20220423
  Serious: No
  Sender: FDA-Public Use
  Company Number: US-drreddys-SPO/USA/22/0145910

PATIENT
  Age: 70 Year
  Sex: Female
  Weight: 96.3 kg

DRUGS (1)
  1. NICOTINE [Suspect]
     Active Substance: NICOTINE
     Indication: Tobacco user
     Route: 062
     Dates: start: 20220101

REACTIONS (5)
  - Fatigue [Unknown]
  - Asthenia [Unknown]
  - Hypersomnia [Unknown]
  - Nicotine dependence [Recovered/Resolved]
  - Physical product label issue [Unknown]

NARRATIVE: CASE EVENT DATE: 20220101
